FAERS Safety Report 16169663 (Version 1)
Quarter: 2019Q2

REPORT INFORMATION
  Report Type: Spontaneous
  Country: US (occurrence: US)
  Receive Date: 20190305
  Receipt Date: 20190305
  Transmission Date: 20190711
  Serious: Yes (Life-Threatening, Hospitalization)
  Sender: FDA-Public Use
  Company Number: None

PATIENT
  Age: 16 Year
  Sex: Male

DRUGS (1)
  1. TOBRAMYCIN 300 MG/5ML NEB [Suspect]
     Active Substance: TOBRAMYCIN SULFATE
     Indication: CYSTIC FIBROSIS
     Dosage: ?          OTHER FREQUENCY:BID X 2 WEEKS;?
     Route: 055
     Dates: start: 20180301

REACTIONS (3)
  - Flatulence [None]
  - Abdominal distension [None]
  - Dyspnoea [None]

NARRATIVE: CASE EVENT DATE: 201901
